FAERS Safety Report 4674988-8 (Version None)
Quarter: 2005Q2

REPORT INFORMATION
  Report Type: 
  Country: None (occurrence: None)
  Receive Date: 20050526
  Receipt Date: 20050512
  Transmission Date: 20051028
  Serious: Yes (Hospitalization)
  Sender: FDA-Public Use
  Company Number: SEWYE668016MAY05

PATIENT
  Sex: Female

DRUGS (1)
  1. ENBREL [Suspect]
     Indication: RHEUMATOID ARTHRITIS
     Dosage: THE DOSE REGIMEN WAS NOT SPECIFIED
     Dates: start: 19990101, end: 20040901

REACTIONS (1)
  - CONGESTIVE CARDIOMYOPATHY [None]
